FAERS Safety Report 6577924-2 (Version None)
Quarter: 2010Q1

REPORT INFORMATION
  Report Type: 
  Country: None (occurrence: None)
  Receive Date: 20100211
  Receipt Date: 20100205
  Transmission Date: 20100710
  Serious: Yes (Death, Hospitalization)
  Sender: FDA-Public Use
  Company Number: BE-ELI_LILLY_AND_COMPANY-BE200911007129

PATIENT
  Sex: Female
  Weight: 78 kg

DRUGS (7)
  1. GEMCITABINE HCL [Suspect]
     Indication: BREAST CANCER METASTATIC
     Dosage: 1000 MG, DAYS 1+8 EVERY 3 WEEKS
     Route: 042
     Dates: start: 20091007
  2. VINFLUNINE [Suspect]
     Indication: BREAST CANCER METASTATIC
     Dosage: 320 MG/M2, DAY 1 EVERY 3 WEEKS
     Route: 042
     Dates: start: 20091007
  3. LIPANTHYL [Concomitant]
     Dates: start: 20040625
  4. LIPANTHYL [Concomitant]
     Dates: start: 20040625
  5. DAFALGAN CODEINE [Concomitant]
     Dates: start: 20070914
  6. AMLOR [Concomitant]
     Dates: start: 20091013
  7. MEDROL [Concomitant]
     Dates: start: 20091013

REACTIONS (4)
  - HEPATIC FAILURE [None]
  - NEUTROPENIC SEPSIS [None]
  - RESPIRATORY FAILURE [None]
  - THROMBOCYTOPENIA [None]
